FAERS Safety Report 13701455 (Version 1)
Quarter: 2017Q2

REPORT INFORMATION
  Report Type: Spontaneous
  Country: US (occurrence: US)
  Receive Date: 20170628
  Receipt Date: 20170628
  Transmission Date: 20170830
  Serious: Yes (Other)
  Sender: FDA-Public Use
  Company Number: None

PATIENT
  Age: 51 Year
  Sex: Female

DRUGS (1)
  1. VIGAMOX [Suspect]
     Active Substance: MOXIFLOXACIN HYDROCHLORIDE
     Indication: EYE INFECTION
     Dosage: ?          OTHER STRENGTH:GTT;QUANTITY:3 DROP(S);?
     Route: 047
     Dates: start: 20170213, end: 20170313

REACTIONS (2)
  - Corneal scar [None]
  - Blister [None]

NARRATIVE: CASE EVENT DATE: 20170317
